FAERS Safety Report 5313809-7 (Version None)
Quarter: 2007Q2

REPORT INFORMATION
  Report Type: 
  Country: None (occurrence: None)
  Receive Date: 20070501
  Receipt Date: 20070416
  Transmission Date: 20071010
  Serious: Yes (Other)
  Sender: FDA-Public Use
  Company Number: DE-PURDUE-DEU_2007_0003259

PATIENT
  Sex: Male

DRUGS (2)
  1. PALLADON RETARD 16 MG [Suspect]
     Indication: PAIN
     Dosage: 16 MG, BID
     Route: 048
     Dates: start: 19980101, end: 20060101
  2. DOLANTIN [Suspect]
     Indication: PAIN
     Dates: start: 20060101

REACTIONS (3)
  - DIARRHOEA [None]
  - DRUG WITHDRAWAL SYNDROME [None]
  - RENAL FAILURE ACUTE [None]
